FAERS Safety Report 21617003 (Version 1)
Quarter: 2022Q4

REPORT INFORMATION
  Report Type: Spontaneous
  Country: US (occurrence: US)
  Receive Date: 20221118
  Receipt Date: 20221118
  Transmission Date: 20230113
  Serious: Yes (Other)
  Sender: FDA-Public Use
  Company Number: US-009507513-2211USA005909

PATIENT
  Age: 67 Year
  Sex: Female

DRUGS (3)
  1. KEYTRUDA [Suspect]
     Active Substance: PEMBROLIZUMAB
     Indication: Endometrial cancer
     Dosage: UNK
     Dates: end: 20221019
  2. LENVATINIB MESYLATE [Suspect]
     Active Substance: LENVATINIB MESYLATE
     Indication: Endometrial cancer
     Dosage: 20 MILLIGRAM
     Route: 048
     Dates: start: 20220723, end: 20220810
  3. LENVATINIB MESYLATE [Suspect]
     Active Substance: LENVATINIB MESYLATE
     Dosage: 10 MILLIGRAM
     Route: 048
     Dates: start: 20220926, end: 20221019

REACTIONS (13)
  - Burn oral cavity [Recovering/Resolving]
  - Stomatitis [Recovering/Resolving]
  - Glossodynia [Recovering/Resolving]
  - Ageusia [Recovering/Resolving]
  - Dysphagia [Recovering/Resolving]
  - Weight decreased [Recovering/Resolving]
  - Vomiting [Recovering/Resolving]
  - Thyroid disorder [Recovering/Resolving]
  - Pain in extremity [Recovering/Resolving]
  - Hypoaesthesia [Recovering/Resolving]
  - Skin exfoliation [Recovering/Resolving]
  - Pruritus [Recovering/Resolving]
  - Rash [Recovering/Resolving]

NARRATIVE: CASE EVENT DATE: 20220101
